FAERS Safety Report 10084384 (Version 1)
Quarter: 2014Q2

REPORT INFORMATION
  Report Type: Spontaneous
  Country: US (occurrence: US)
  Receive Date: 20140417
  Receipt Date: 20140417
  Transmission Date: 20141212
  Serious: Yes (Other)
  Sender: FDA-Public Use
  Company Number: US-BAXTER-2014BAX018506

PATIENT
  Age: 57 Year
  Sex: Female

DRUGS (1)
  1. GAMMAGARD LIQUID [Suspect]
     Indication: PRODUCT USED FOR UNKNOWN INDICATION
     Route: 042

REACTIONS (6)
  - Pneumonia [Unknown]
  - Pulmonary embolism [Unknown]
  - Lung infiltration [Unknown]
  - Deep vein thrombosis [Unknown]
  - Swelling [Unknown]
  - Arthritis [Unknown]
